FAERS Safety Report 23728641 (Version 3)
Quarter: 2024Q2

REPORT INFORMATION
  Report Type: Spontaneous
  Country: AU (occurrence: AU)
  Receive Date: 20240410
  Receipt Date: 20240513
  Transmission Date: 20240716
  Serious: Yes (Other)
  Sender: FDA-Public Use
  Company Number: AU-PFIZER INC-PV202400046052

PATIENT
  Age: 97 Year
  Sex: Male

DRUGS (1)
  1. VYNDAMAX [Suspect]
     Active Substance: TAFAMIDIS
     Indication: Cardiac amyloidosis
     Dosage: 61MG ONCE A DAY

REACTIONS (4)
  - Foreign body in throat [Unknown]
  - Regurgitation [Unknown]
  - Cough [Unknown]
  - Fatigue [Unknown]
